FAERS Safety Report 9492155 (Version 1)
Quarter: 2013Q3

REPORT INFORMATION
  Report Type: Report from Study
  Country: US (occurrence: US)
  Receive Date: 20130830
  Receipt Date: 20130830
  Transmission Date: 20140515
  Serious: Yes (Hospitalization)
  Sender: FDA-Public Use
  Company Number: US-JNJFOC-20130812813

PATIENT
  Age: 87 Year
  Sex: Male
  Weight: 54.43 kg

DRUGS (4)
  1. ZYTIGA [Suspect]
     Indication: PROSTATE CANCER
     Route: 048
     Dates: start: 20130821
  2. ZYTIGA [Suspect]
     Indication: PROSTATE CANCER
     Route: 048
     Dates: start: 20130815, end: 20130820
  3. ASPIRIN [Suspect]
     Indication: PRODUCT USED FOR UNKNOWN INDICATION
     Route: 065
  4. PAXIL [Concomitant]
     Indication: DEPRESSION
     Route: 048
     Dates: start: 2012

REACTIONS (2)
  - Catheter site haemorrhage [Recovered/Resolved]
  - Drug administration error [Not Recovered/Not Resolved]
